FAERS Safety Report 23839736 (Version 1)
Quarter: 2024Q2

REPORT INFORMATION
  Report Type: Spontaneous
  Country: US (occurrence: US)
  Receive Date: 20240510
  Receipt Date: 20240510
  Transmission Date: 20240715
  Serious: No
  Sender: FDA-Public Use
  Company Number: US-TEVA-VS-3184196

PATIENT
  Age: 64 Year
  Sex: Female

DRUGS (1)
  1. AUSTEDO [Suspect]
     Active Substance: DEUTETRABENAZINE
     Indication: Product used for unknown indication
     Dosage: TWO AUSTEDO 9 MG TABLETS DAILY
     Route: 065

REACTIONS (1)
  - Inappropriate schedule of product administration [Unknown]
